FAERS Safety Report 5428496-7 (Version None)
Quarter: 2007Q3

REPORT INFORMATION
  Report Type: 
  Country: None (occurrence: None)
  Receive Date: 20070824
  Receipt Date: 20070809
  Transmission Date: 20080115
  Serious: No
  Sender: FDA-Public Use
  Company Number: US-1162664

PATIENT
  Sex: Female

DRUGS (3)
  1. TRAVATAN Z [Suspect]
     Indication: GLAUCOMA
     Dosage: OPHTHALMIC
     Route: 047
     Dates: start: 20070312, end: 20070329
  2. HYDROCODONE BITARTRATE [Concomitant]
  3. LISINOPRIL [Concomitant]

REACTIONS (5)
  - ACCIDENTAL EXPOSURE [None]
  - MACULAR DEGENERATION [None]
  - MACULAR OEDEMA [None]
  - RETINAL HAEMORRHAGE [None]
  - VISION BLURRED [None]
